FAERS Safety Report 5738646-0 (Version None)
Quarter: 2008Q2

REPORT INFORMATION
  Report Type: 
  Country: None (occurrence: None)
  Receive Date: 20080515
  Receipt Date: 20080509
  Transmission Date: 20081010
  Serious: Yes (Other)
  Sender: FDA-Public Use
  Company Number: PHHY2008BR07631

PATIENT
  Age: 76 Year
  Sex: Female
  Weight: 53 kg

DRUGS (8)
  1. DIOVAN [Suspect]
     Indication: HYPERTENSION
     Dosage: 1 DF, BID
     Route: 048
  2. MODURETIC 5-50 [Concomitant]
     Dosage: 1 DF, UNK
     Route: 048
  3. PRANDIN [Concomitant]
     Indication: DIABETES MELLITUS
     Dosage: 1 MG, BID
     Route: 048
  4. GLUCOFORMIN [Concomitant]
     Indication: DIABETES MELLITUS
     Dosage: 850 MG, BID
     Route: 048
  5. BETASERC [Concomitant]
     Dosage: 1 TABLET DAILY
     Route: 048
  6. VINPOCETINE [Concomitant]
     Dosage: 5 MG, BID
     Route: 048
  7. ACETYLSALICYLIC ACID SRT [Concomitant]
     Dosage: 2 TABLETS DAILY
     Route: 048
  8. LORAX /NET/ [Concomitant]
     Dosage: 1 TABLET DAILY
     Route: 048

REACTIONS (2)
  - CATARACT OPERATION [None]
  - VISUAL DISTURBANCE [None]
